FAERS Safety Report 8433195-3 (Version None)
Quarter: 2012Q2

REPORT INFORMATION
  Report Type: 
  Country: None (occurrence: None)
  Receive Date: 20120613
  Receipt Date: 20120508
  Transmission Date: 20120825
  Serious: Yes (Other)
  Sender: FDA-Public Use
  Company Number: AU-GLAXOSMITHKLINE-B0800721A

PATIENT
  Sex: Female

DRUGS (2)
  1. XELODA [Suspect]
     Indication: BREAST CANCER
     Route: 065
     Dates: start: 20120225, end: 20120522
  2. TYKERB [Suspect]
     Indication: BREAST CANCER
     Dates: start: 20120126, end: 20120522

REACTIONS (2)
  - PAIN IN EXTREMITY [None]
  - METASTASIS [None]
